FAERS Safety Report 5771745-6 (Version None)
Quarter: 2008Q2

REPORT INFORMATION
  Report Type: 
  Country: None (occurrence: None)
  Receive Date: 20080613
  Receipt Date: 20080603
  Transmission Date: 20081010
  Serious: Yes (Hospitalization)
  Sender: FDA-Public Use
  Company Number: PH-NOVOPROD-275898

PATIENT

DRUGS (2)
  1. NOVOSEVEN [Suspect]
     Indication: HAEMORRHAGE
     Dosage: 90 UG/KG, UNK
     Route: 042
  2. NOVOSEVEN [Concomitant]
     Dosage: 3.6 UG/KG, QD
     Route: 042

REACTIONS (1)
  - SEPSIS [None]
